FAERS Safety Report 11611230 (Version 1)
Quarter: 2015Q4

REPORT INFORMATION
  Report Type: Spontaneous
  Country: US (occurrence: None)
  Receive Date: 20151007
  Receipt Date: 20151007
  Transmission Date: 20160304
  Serious: Yes (Hospitalization)
  Sender: FDA-Public Use
  Company Number: None

PATIENT
  Age: 52 Year
  Sex: Female
  Weight: 63.5 kg

DRUGS (1)
  1. TEMOZOLOMIDE. [Suspect]
     Active Substance: TEMOZOLOMIDE
     Dosage: C4 STARTED 8/26/15
     Dates: end: 20150830

REACTIONS (4)
  - Contusion [None]
  - Platelet count decreased [None]
  - Joint injury [None]
  - Skin abrasion [None]

NARRATIVE: CASE EVENT DATE: 20150920
